FAERS Safety Report 15676079 (Version 1)
Quarter: 2018Q4

REPORT INFORMATION
  Report Type: Spontaneous
  Country: IT (occurrence: IT)
  Receive Date: 20181130
  Receipt Date: 20181130
  Transmission Date: 20190205
  Serious: Yes (Other)
  Sender: FDA-Public Use
  Company Number: IT-PFIZER INC-2018487682

PATIENT
  Age: 21 Year
  Sex: Female

DRUGS (2)
  1. TAVOR (LORAZEPAM) [Suspect]
     Active Substance: LORAZEPAM
     Dosage: 10 DF, TOTAL
     Route: 048
     Dates: start: 20181105, end: 20181105
  2. RISPERDAL [Suspect]
     Active Substance: RISPERIDONE
     Dosage: 20 MG, TOTAL
     Route: 048
     Dates: start: 20181105, end: 20181105

REACTIONS (3)
  - Intentional overdose [Unknown]
  - Intentional self-injury [Unknown]
  - Sluggishness [Unknown]

NARRATIVE: CASE EVENT DATE: 20181105
